FAERS Safety Report 7705553-3 (Version None)
Quarter: 2011Q3

REPORT INFORMATION
  Report Type: 
  Country: None (occurrence: None)
  Receive Date: 20110824
  Receipt Date: 20110816
  Transmission Date: 20111222
  Serious: Yes (Hospitalization, Other)
  Sender: FDA-Public Use
  Company Number: DE-AMGEN-DEUCT2011035188

PATIENT
  Age: 71 Year
  Sex: Female

DRUGS (6)
  1. IBUPROFEN [Concomitant]
     Dosage: 600 MG, OCCASSIONALLY AS NEEDED PERHAPS
  2. LEVOTHYROXINE SODIUM [Concomitant]
     Dosage: 75 UG, UNK, TAKEN SINCE MID 2006
     Dates: start: 20060101
  3. ETANERCEPT [Suspect]
     Indication: RHEUMATOID ARTHRITIS
     Dosage: 50 MG, UNK (CUMULATIVE DOSE: 700MG)
     Dates: start: 20100301, end: 20100628
  4. METEX                              /00113802/ [Suspect]
     Indication: RHEUMATOID ARTHRITIS
     Dosage: 15 MG, WEEKLY
     Route: 048
     Dates: start: 20060901
  5. ALENDRONATE SODIUM [Concomitant]
     Dosage: 70 MG, WEEKLY, TAKEN SINCE MIND. 2004
     Dates: start: 20040101
  6. CALCIUM WITH VITAMIN D             /01233101/ [Concomitant]
     Dosage: UNK

REACTIONS (2)
  - JOINT RANGE OF MOTION DECREASED [None]
  - ABSCESS LIMB [None]
